FAERS Safety Report 9665890 (Version 1)
Quarter: 2013Q4

REPORT INFORMATION
  Report Type: Spontaneous
  Country: US (occurrence: None)
  Receive Date: 20131101
  Receipt Date: 20131101
  Transmission Date: 20140711
  Serious: Yes (Other)
  Sender: FDA-Public Use
  Company Number: None

PATIENT
  Age: 48 Year
  Sex: Female
  Weight: 82.56 kg

DRUGS (1)
  1. ALBUTEROL SULFATE [Suspect]
     Indication: BRONCHITIS
     Route: 055
     Dates: start: 20131012, end: 20131015

REACTIONS (10)
  - Burning sensation [None]
  - Dysgeusia [None]
  - Respiratory disorder [None]
  - Nausea [None]
  - Dizziness [None]
  - Pain [None]
  - Cough [None]
  - Headache [None]
  - Sputum discoloured [None]
  - Dyspnoea [None]
